FAERS Safety Report 24448688 (Version 1)
Quarter: 2024Q4

REPORT INFORMATION
  Report Type: Spontaneous
  Country: US (occurrence: US)
  Receive Date: 20241017
  Receipt Date: 20241017
  Transmission Date: 20250115
  Serious: No
  Sender: BEIGENE
  Company Number: US-BEIGENE-BGN-2024-015900

PATIENT

DRUGS (2)
  1. BRUKINSA [Suspect]
     Active Substance: ZANUBRUTINIB
     Indication: Marginal zone lymphoma
     Route: 048
  2. CALQUENCE [Suspect]
     Active Substance: ACALABRUTINIB
     Indication: Marginal zone lymphoma

REACTIONS (1)
  - Skin disorder [Recovering/Resolving]

NARRATIVE: CASE EVENT DATE: 20240904
